FAERS Safety Report 14976459 (Version 2)
Quarter: 2018Q2

REPORT INFORMATION
  Report Type: Spontaneous
  Country: US (occurrence: US)
  Receive Date: 20180605
  Receipt Date: 20180611
  Transmission Date: 20180711
  Serious: No
  Sender: FDA-Public Use
  Company Number: US-PFIZER INC-2018224480

PATIENT
  Age: 63 Year
  Sex: Female
  Weight: 102.4 kg

DRUGS (3)
  1. ALPRAZOLAM. [Suspect]
     Active Substance: ALPRAZOLAM
     Indication: ANXIETY DISORDER
     Dosage: 1 MG, 1X/DAY (AT NIGHT)
     Route: 048
  2. ALPRAZOLAM. [Suspect]
     Active Substance: ALPRAZOLAM
     Dosage: 1.5 MG, 1X/DAY (1 1/2 MG AT BEDTIME)
     Route: 048
     Dates: start: 201705
  3. ALPRAZOLAM. [Suspect]
     Active Substance: ALPRAZOLAM
     Dosage: 1 MG, 1X/DAY (AT BEDTIME)
     Route: 048
     Dates: start: 20170529

REACTIONS (2)
  - Therapeutic response shortened [Unknown]
  - Intentional product use issue [Unknown]
